FAERS Safety Report 23280653 (Version 1)
Quarter: 2023Q4

REPORT INFORMATION
  Report Type: Spontaneous
  Country: US (occurrence: US)
  Receive Date: 20231211
  Receipt Date: 20231211
  Transmission Date: 20240110
  Serious: No
  Sender: FDA-Public Use
  Company Number: US-PRINSTON PHARMACEUTICAL INC.-2023PRN00494

PATIENT
  Age: 17 Year
  Sex: Female

DRUGS (1)
  1. LISDEXAMFETAMINE DIMESYLATE [Suspect]
     Active Substance: LISDEXAMFETAMINE DIMESYLATE
     Dosage: UNK

REACTIONS (7)
  - Feeling abnormal [Unknown]
  - Nystagmus [Unknown]
  - Disturbance in attention [Unknown]
  - Emotional disorder [Unknown]
  - Vision blurred [Unknown]
  - Dyskinesia [Unknown]
  - Product substitution issue [Unknown]
